FAERS Safety Report 8225573-2 (Version None)
Quarter: 2012Q1

REPORT INFORMATION
  Report Type: 
  Country: None (occurrence: None)
  Receive Date: 20120321
  Receipt Date: 20120316
  Transmission Date: 20120608
  Serious: Yes (Death, Hospitalization)
  Sender: FDA-Public Use
  Company Number: PHHY2012JP023405

PATIENT
  Age: 75 Year
  Sex: Male

DRUGS (3)
  1. PREDNISOLONE [Concomitant]
     Dosage: 40 MG, PER DAY
  2. PREDNISOLONE [Concomitant]
     Indication: RHEUMATOID ARTHRITIS
     Dosage: 25 MG, PER DAY
     Dates: start: 20090530
  3. AMPICILLIN SODIUM/SULBACTAM SODIUM [Suspect]
     Indication: BRONCHITIS
     Dosage: 3 G, BID

REACTIONS (7)
  - HYPOALBUMINAEMIA [None]
  - CRYPTOSPORIDIOSIS INFECTION [None]
  - RESPIRATORY FAILURE [None]
  - TRICHOSPORON INFECTION [None]
  - PNEUMONIA ASPIRATION [None]
  - PNEUMONIA CRYPTOCOCCAL [None]
  - PLEURAL EFFUSION [None]
